FAERS Safety Report 22192990 (Version 1)
Quarter: 2023Q2

REPORT INFORMATION
  Report Type: Spontaneous
  Country: US (occurrence: US)
  Receive Date: 20230410
  Receipt Date: 20230410
  Transmission Date: 20230722
  Serious: No
  Sender: FDA-Public Use
  Company Number: US-THEA-2022001715

PATIENT
  Age: 73 Year
  Sex: Female

DRUGS (4)
  1. ZIOPTAN [Suspect]
     Active Substance: TAFLUPROST
     Indication: Glaucoma
     Dosage: EACH EYE AT NIGHT.
     Route: 047
     Dates: start: 202205
  2. LEVOXYL [Concomitant]
     Active Substance: LEVOTHYROXINE SODIUM
  3. ROSUVASTATIN [Concomitant]
     Active Substance: ROSUVASTATIN
  4. STOOL SOFTENER (DOCUSATE) [Concomitant]
     Active Substance: DOCUSATE

REACTIONS (1)
  - Urinary tract infection [Unknown]
